FAERS Safety Report 20150122 (Version 2)
Quarter: 2022Q2

REPORT INFORMATION
  Report Type: Spontaneous
  Country: US (occurrence: US)
  Receive Date: 20211206
  Receipt Date: 20220610
  Transmission Date: 20220721
  Serious: Yes (Other)
  Sender: FDA-Public Use
  Company Number: US-MLMSERVICE-20211118-3229321-1

PATIENT
  Sex: Female

DRUGS (6)
  1. AZATHIOPRINE [Suspect]
     Active Substance: AZATHIOPRINE
     Indication: Central nervous system lupus
     Dosage: UNKNOWN
     Route: 065
  2. AZATHIOPRINE [Suspect]
     Active Substance: AZATHIOPRINE
     Indication: Systemic lupus erythematosus
  3. AZATHIOPRINE [Suspect]
     Active Substance: AZATHIOPRINE
     Indication: Myelitis transverse
  4. PREDNISONE [Concomitant]
     Active Substance: PREDNISONE
     Indication: Myelitis transverse
     Dosage: UNKNOWN
     Route: 065
  5. PREDNISONE [Concomitant]
     Active Substance: PREDNISONE
     Indication: Systemic lupus erythematosus
  6. PREDNISONE [Concomitant]
     Active Substance: PREDNISONE
     Indication: Central nervous system lupus

REACTIONS (2)
  - Hepatitis [Unknown]
  - Drug intolerance [Unknown]
